FAERS Safety Report 10535063 (Version 1)
Quarter: 2014Q4

REPORT INFORMATION
  Report Type: Spontaneous
  Country: US (occurrence: US)
  Receive Date: 20141022
  Receipt Date: 20141022
  Transmission Date: 20150529
  Serious: No
  Sender: FDA-Public Use
  Company Number: US-ASTRAZENECA-2014SE18290

PATIENT
  Age: 87 Year
  Sex: Female

DRUGS (1)
  1. CRESTOR [Suspect]
     Active Substance: ROSUVASTATIN CALCIUM
     Indication: LOW DENSITY LIPOPROTEIN DECREASED
     Route: 048

REACTIONS (4)
  - Carpal tunnel syndrome [Unknown]
  - Pain [Unknown]
  - Arthralgia [Unknown]
  - Cardiac disorder [Unknown]
